FAERS Safety Report 4313083-4 (Version None)
Quarter: 2004Q1

REPORT INFORMATION
  Report Type: 
  Country: None (occurrence: None)
  Receive Date: 20040304
  Receipt Date: 20040227
  Transmission Date: 20041129
  Serious: Yes (Life-Threatening, Hospitalization)
  Sender: FDA-Public Use
  Company Number: 2003191750US

PATIENT
  Age: 75 Year
  Sex: Female
  Weight: 64.4 kg

DRUGS (7)
  1. ELLENCE [Suspect]
     Indication: BREAST CANCER
     Dosage: 75 MG/M2, CYCLIC
     Dates: start: 20030826, end: 20031209
  2. CYCLOPHOSPHAMIDE [Suspect]
     Indication: BREAST CANCER
     Dosage: 500 MG/M2, CYCLIC
     Dates: start: 20030826, end: 20031209
  3. TAXOTERE [Suspect]
     Indication: BREAST CANCER
     Dosage: 75 MG/M2, CYCLIC
     Dates: start: 20030826, end: 20031209
  4. AVAPRO [Concomitant]
  5. TOPROL-XL [Concomitant]
  6. RANITIDINE [Concomitant]
  7. LIPITOR [Concomitant]

REACTIONS (7)
  - DEHYDRATION [None]
  - ELECTROLYTE IMBALANCE [None]
  - FLUID IMBALANCE [None]
  - HYPOKALAEMIA [None]
  - PANCYTOPENIA [None]
  - PULMONARY OEDEMA [None]
  - SYNCOPE [None]
